FAERS Safety Report 25049839 (Version 1)
Quarter: 2025Q1

REPORT INFORMATION
  Report Type: Report from Study
  Country: IR (occurrence: IR)
  Receive Date: 20250307
  Receipt Date: 20250307
  Transmission Date: 20250408
  Serious: Yes (Death, Other)
  Sender: RANBAXY
  Company Number: IR-SUN PHARMACEUTICAL INDUSTRIES LTD-2025R1-497517

PATIENT
  Age: 35 Year
  Sex: Male

DRUGS (2)
  1. DAPSONE [Suspect]
     Active Substance: DAPSONE
     Indication: Immunosuppression
     Route: 065
  2. METHOTREXATE [Suspect]
     Active Substance: METHOTREXATE
     Indication: Immunosuppression
     Route: 065

REACTIONS (4)
  - COVID-19 [Fatal]
  - Therapeutic response decreased [Unknown]
  - Hepatic enzyme increased [Unknown]
  - White blood cell count increased [Unknown]
